FAERS Safety Report 7190060-X (Version None)
Quarter: 2010Q4

REPORT INFORMATION
  Report Type: 
  Country: None (occurrence: None)
  Receive Date: 20101213
  Receipt Date: 20101203
  Transmission Date: 20110411
  Serious: No
  Sender: FDA-Public Use
  Company Number: 2010SP062389

PATIENT
  Age: 46 Year
  Sex: Female

DRUGS (3)
  1. MIRALAX [Suspect]
     Indication: CONSTIPATION
     Dosage: 17 GM;ONCE;PO
     Route: 048
     Dates: start: 20101122
  2. PAIN KILLERS [Concomitant]
  3. ANTIBIOTICS [Concomitant]

REACTIONS (2)
  - ANAL HAEMORRHAGE [None]
  - FAECAL INCONTINENCE [None]
